FAERS Safety Report 8879713 (Version 1)
Quarter: 2012Q4

REPORT INFORMATION
  Report Type: Report from Study
  Country: GB (occurrence: GB)
  Receive Date: 20121101
  Receipt Date: 20121101
  Transmission Date: 20130627
  Serious: Yes (Hospitalization)
  Sender: FDA-Public Use
  Company Number: GB-AMGEN-GBRCT2012069087

PATIENT
  Age: 3 Year
  Sex: Female
  Weight: 13.8 kg

DRUGS (3)
  1. ETANERCEPT [Suspect]
     Indication: PRODUCT USED FOR UNKNOWN INDICATION
     Dosage: 5.6 mg, 2 times/wk
     Route: 058
     Dates: start: 20110802, end: 20110812
  2. SALBUTAMOL [Concomitant]
     Dosage: 500 ug, as needed
     Route: 055
     Dates: start: 20110802
  3. PREDNISOLONE [Concomitant]
     Dosage: 15 mg, 1x/day
     Route: 048
     Dates: start: 20110701

REACTIONS (1)
  - Eye disorder [Recovered/Resolved]
